FAERS Safety Report 9765401 (Version 1)
Quarter: 2013Q4

REPORT INFORMATION
  Report Type: Spontaneous
  Country: US (occurrence: US)
  Receive Date: 20131217
  Receipt Date: 20131217
  Transmission Date: 20140711
  Serious: No
  Sender: FDA-Public Use
  Company Number: US-GLAXOSMITHKLINE-A1006981A

PATIENT
  Age: 63 Year
  Sex: Male
  Weight: 83.4 kg

DRUGS (1)
  1. VOTRIENT [Suspect]
     Indication: BONE NEOPLASM
     Dosage: 200MG SEE DOSAGE TEXT
     Route: 065

REACTIONS (5)
  - White blood cell count decreased [Recovering/Resolving]
  - Off label use [Unknown]
  - Nausea [Unknown]
  - Diarrhoea [Unknown]
  - Neutropenia [Unknown]
